FAERS Safety Report 8026012-7 (Version None)
Quarter: 2012Q1

REPORT INFORMATION
  Report Type: 
  Country: None (occurrence: None)
  Receive Date: 20120105
  Receipt Date: 20111012
  Transmission Date: 20120608
  Serious: No
  Sender: FDA-Public Use
  Company Number: US-ABBOTT-11P-163-0864293-00

PATIENT
  Sex: Male
  Weight: 97.61 kg

DRUGS (3)
  1. UNKNOWN MEDICATION [Concomitant]
     Indication: BLOOD PRESSURE
  2. SYNTHROID [Suspect]
     Indication: THYROID DISORDER
     Dates: start: 20070101
  3. SYNTHROID [Suspect]

REACTIONS (6)
  - FEELING JITTERY [None]
  - HEART RATE DECREASED [None]
  - FEELING ABNORMAL [None]
  - PRODUCT QUALITY ISSUE [None]
  - HEART RATE INCREASED [None]
  - FATIGUE [None]
